FAERS Safety Report 8156745-3 (Version None)
Quarter: 2012Q1

REPORT INFORMATION
  Report Type: 
  Country: None (occurrence: None)
  Receive Date: 20120103
  Receipt Date: 20111111
  Transmission Date: 20120608
  Serious: No
  Sender: FDA-Public Use
  Company Number: AE-2011-002661

PATIENT
  Age: 31 Year
  Sex: Female
  Weight: 122.0176 kg

DRUGS (4)
  1. INCIVEK [Suspect]
     Dosage: 2571.4286 MG (750 MG, 1 IN 7 HR), ORAL
     Route: 048
     Dates: start: 20111014
  2. PROZAC [Concomitant]
  3. RIBAVIRIN [Concomitant]
  4. PEGASYS [Concomitant]

REACTIONS (2)
  - ANORECTAL DISCOMFORT [None]
  - DRUG DOSE OMISSION [None]
